FAERS Safety Report 5238136-8 (Version None)
Quarter: 2007Q1

REPORT INFORMATION
  Report Type: 
  Country: None (occurrence: None)
  Receive Date: 20070215
  Receipt Date: 20070105
  Transmission Date: 20070707
  Serious: Yes (Other)
  Sender: FDA-Public Use
  Company Number: DE-BRISTOL-MYERS SQUIBB COMPANY-12585667

PATIENT
  Age: 64 Year
  Sex: Male
  Weight: 60 kg

DRUGS (17)
  1. CETUXIMAB [Suspect]
     Indication: COLORECTAL CANCER
     Dosage: MOST RECENT INFUSION: 02-DEC-2003, CYCLE 2, DAY 8
     Route: 041
     Dates: start: 20031014
  2. OXALIPLATIN [Suspect]
     Indication: COLORECTAL CANCER
     Dosage: DOSAGE REDUCED TO 25MG/M2 ON 20-APR-2004 DUE TO EVENT OF NEUROPATHY GR 3
     Route: 042
     Dates: start: 20031014, end: 20040420
  3. FLUOROURACIL [Suspect]
     Indication: COLORECTAL CANCER
     Route: 042
     Dates: start: 20031014
  4. FOLINIC ACID [Suspect]
     Indication: COLORECTAL CANCER
     Route: 042
     Dates: start: 20031014
  5. MINOCYCLINE HCL [Concomitant]
     Indication: SKIN EXFOLIATION
     Dosage: REPORTED AS ^UDIMAR^
     Route: 048
     Dates: start: 20031028, end: 20031125
  6. TRIAMCINOLONE [Concomitant]
     Indication: SKIN EXFOLIATION
     Dosage: REPORTED AS ^ZINKLOTION^ USED FOR SKIN DESQUAMATION
     Route: 061
     Dates: start: 20031028, end: 20031125
  7. KEVATRIL [Concomitant]
     Indication: PREMEDICATION
     Dosage: PROPHYLAXIS BEFORE CHEMOTHERAPY
     Route: 042
     Dates: start: 20031014
  8. FORTECORTIN [Concomitant]
     Indication: PREMEDICATION
     Dosage: PROPHYLAXIS BEFORE CHEMOTHERAPY
     Route: 042
     Dates: start: 20031014
  9. FENISTIL [Concomitant]
     Indication: PREMEDICATION
     Dosage: PROPHYLAXIS BEFORE CHEMOTHERAPY
     Route: 042
     Dates: start: 20031014
  10. MAGNESIUM [Concomitant]
     Indication: PREMEDICATION
     Dosage: MAGNESIUM 5: PROPHYLAXIS BEFORE AND AFTER OXALIPLATIN
     Route: 042
     Dates: start: 20031014
  11. CALCIUM [Concomitant]
     Indication: PREMEDICATION
     Dosage: CALCIUM 10%: PROPHYLAXIS BEFORE AND AFTER OXALIPLATIN
     Route: 042
     Dates: start: 20031014
  12. PANTOZOL [Concomitant]
     Indication: DYSPEPSIA
     Route: 048
     Dates: start: 20040120
  13. NEURONTIN [Concomitant]
     Indication: PARAESTHESIA
     Route: 048
     Dates: start: 20040120, end: 20040302
  14. BEPANTHEN [Concomitant]
     Indication: DRY SKIN
     Route: 061
     Dates: start: 20040210
  15. BETAISODONA [Concomitant]
     Dosage: BETASISODONA SOLUTION USED FOR NAIL CHANGE PURIFORMA/OINTMENT STARTED ON 15-MAY-04
     Route: 061
     Dates: start: 20040217, end: 20040515
  16. VOLTAREN [Concomitant]
     Indication: PAIN
     Dosage: VOLTAREN OINTMENT USED FOR NAIL CHANGE PURIFORM
     Route: 061
     Dates: start: 20040224
  17. LOPERAMIDE HCL [Concomitant]
     Indication: DIARRHOEA
     Route: 048
     Dates: start: 20040317, end: 20040321

REACTIONS (5)
  - COMPLEX REGIONAL PAIN SYNDROME [None]
  - DISABILITY [None]
  - NEUROPATHY [None]
  - PAIN [None]
  - SWELLING [None]
